FAERS Safety Report 6702044-3 (Version None)
Quarter: 2010Q2

REPORT INFORMATION
  Report Type: 
  Country: None (occurrence: None)
  Receive Date: 20100429
  Receipt Date: 20100423
  Transmission Date: 20101027
  Serious: Yes (Other)
  Sender: FDA-Public Use
  Company Number: GB-ROCHE-699390

PATIENT
  Sex: Male

DRUGS (2)
  1. PEGASYS [Suspect]
     Indication: HEPATITIS C
     Dosage: IN WEEK 20 OF A 24 WEEK COURSE
     Route: 065
  2. COPEGUS [Concomitant]
     Indication: HEPATITIS C
     Dosage: ON WEEK 20 OF A 24 WEEK COURSE

REACTIONS (3)
  - CONFUSIONAL STATE [None]
  - DELIRIUM [None]
  - PARANOIA [None]
